FAERS Safety Report 20491148 (Version 1)
Quarter: 2022Q1

REPORT INFORMATION
  Report Type: Spontaneous
  Country: CN (occurrence: None)
  Receive Date: 20220218
  Receipt Date: 20220218
  Transmission Date: 20220423
  Serious: Yes (Other)
  Sender: FDA-Public Use
  Company Number: 2022A076635

PATIENT
  Age: 74 Year
  Sex: Female

DRUGS (5)
  1. OSIMERTINIB [Suspect]
     Active Substance: OSIMERTINIB
     Indication: Lung adenocarcinoma
     Route: 048
  2. GEFITINIB [Suspect]
     Active Substance: GEFITINIB
     Indication: Lung adenocarcinoma
     Route: 048
  3. BRIGATINIB [Concomitant]
     Active Substance: BRIGATINIB
     Route: 048
  4. BEVACIZUMAB [Concomitant]
     Active Substance: BEVACIZUMAB
     Dosage: 15 MG/KG EVERY 3 WEEKS
     Route: 042
  5. CETUXIMAB [Concomitant]
     Active Substance: CETUXIMAB
     Dosage: 600 MG MONTHLY
     Route: 042

REACTIONS (3)
  - Drug resistance [Unknown]
  - EGFR gene mutation [Unknown]
  - Malignant neoplasm progression [Unknown]
